FAERS Safety Report 25978373 (Version 1)
Quarter: 2025Q4

REPORT INFORMATION
  Report Type: Spontaneous
  Country: EU (occurrence: EU)
  Receive Date: 20251030
  Receipt Date: 20251030
  Transmission Date: 20260118
  Serious: Yes (Other)
  Sender: AUROBINDO
  Company Number: EU-ASTRAZENECA-202507EEA005876IT

PATIENT
  Age: 67 Year
  Sex: Female

DRUGS (4)
  1. FULVESTRANT [Suspect]
     Active Substance: FULVESTRANT
     Indication: Product used for unknown indication
     Dosage: UNK
     Route: 065
     Dates: start: 20250531, end: 20250610
  2. FULVESTRANT [Suspect]
     Active Substance: FULVESTRANT
     Dosage: 500 MILLIGRAM (500 MILLIGRAM, UNKNOWN FREQUENCY)
     Route: 065
  3. CAPIVASERTIB [Suspect]
     Active Substance: CAPIVASERTIB
     Indication: PIK3CA-activated mutation
     Dosage: 640 MILLIGRAM, ONCE A DAY (320 MILLIGRAM, BID)
     Route: 048
     Dates: start: 20250614, end: 20250907
  4. CAPIVASERTIB [Suspect]
     Active Substance: CAPIVASERTIB
     Dosage: UNK UNK, TWO TIMES A DAY (UNK UNK, BID)
     Route: 048
     Dates: start: 20250531, end: 20250610

REACTIONS (2)
  - Malignant neoplasm progression [Unknown]
  - Rash [Recovered/Resolved]

NARRATIVE: CASE EVENT DATE: 20250609
